FAERS Safety Report 21041092 (Version 1)
Quarter: 2022Q3

REPORT INFORMATION
  Report Type: Other
  Country: GB (occurrence: GB)
  Receive Date: 20220705
  Receipt Date: 20220705
  Transmission Date: 20221026
  Serious: Yes (Hospitalization)
  Sender: FDA-Public Use
  Company Number: GB-DEXPHARM-20220894

PATIENT
  Sex: Male

DRUGS (5)
  1. AMISULPRIDE [Interacting]
     Active Substance: AMISULPRIDE
     Dosage: AMISULPIRIDE 100 MG
  2. VENLAFAXINE [Interacting]
     Active Substance: VENLAFAXINE HYDROCHLORIDE
     Dosage: VENLAFAXINE 75 MG
  3. MIRTAZAPINE [Interacting]
     Active Substance: MIRTAZAPINE
     Dosage: MIRTAZAPINE 30 MG
  4. FERROUS SULFATE [Concomitant]
     Active Substance: FERROUS SULFATE
  5. NIFEDIPINE [Concomitant]
     Active Substance: NIFEDIPINE
     Dosage: NIFEDIPINE 40 MG

REACTIONS (2)
  - Parkinsonism [Recovered/Resolved]
  - Drug interaction [Recovered/Resolved]
